FAERS Safety Report 9979683 (Version 1)
Quarter: 2014Q1

REPORT INFORMATION
  Report Type: Report from Study
  Country: US (occurrence: US)
  Receive Date: 20140306
  Receipt Date: 20140306
  Transmission Date: 20141002
  Serious: No
  Sender: FDA-Public Use
  Company Number: US-ABBVIE-13P-163-1170428-00

PATIENT
  Age: 55 Year
  Sex: Female
  Weight: 86.26 kg

DRUGS (5)
  1. HUMIRA [Suspect]
     Indication: PSORIASIS
     Dates: start: 20131023, end: 20131023
  2. HUMIRA [Suspect]
     Dates: start: 20131030
  3. LEVOTHYROXINE [Concomitant]
     Indication: HYPOTHYROIDISM
  4. CLARITIN [Concomitant]
     Indication: FOOD ALLERGY
  5. METHOTREXATE [Concomitant]
     Indication: PSORIASIS

REACTIONS (1)
  - Injection site pain [Not Recovered/Not Resolved]
